FAERS Safety Report 23452200 (Version 2)
Quarter: 2024Q1

REPORT INFORMATION
  Report Type: Spontaneous
  Country: JP (occurrence: JP)
  Receive Date: 20240129
  Receipt Date: 20240304
  Transmission Date: 20240410
  Serious: Yes (Death, Hospitalization)
  Sender: FDA-Public Use
  Company Number: JP-JNJFOC-20240175534

PATIENT
  Age: 5 Decade
  Sex: Female

DRUGS (1)
  1. OPSUMIT [Suspect]
     Active Substance: MACITENTAN
     Indication: Pulmonary arterial hypertension
     Route: 048
     Dates: start: 20230816, end: 20231213

REACTIONS (7)
  - Cardiac failure [Fatal]
  - Pulmonary congestion [Fatal]
  - Pulmonary arterial hypertension [Fatal]
  - Hospitalisation [Unknown]
  - Peripheral venous disease [Unknown]
  - Feeding disorder [Unknown]
  - Bedridden [Unknown]

NARRATIVE: CASE EVENT DATE: 20230101
